FAERS Safety Report 5709545-5 (Version None)
Quarter: 2008Q2

REPORT INFORMATION
  Report Type: 
  Country: None (occurrence: None)
  Receive Date: 20080418
  Receipt Date: 20080403
  Transmission Date: 20081010
  Serious: Yes (Hospitalization, Other)
  Sender: FDA-Public Use
  Company Number: TH-MERCK-0804THA00001

PATIENT

DRUGS (2)
  1. SINGULAIR [Suspect]
     Indication: ASTHMA PROPHYLAXIS
     Route: 048
  2. [THERAPY UNSPECIFIED] [Concomitant]
     Indication: CARDIOVASCULAR DISORDER
     Route: 065

REACTIONS (3)
  - ASTHMA [None]
  - MYOCARDIAL INFARCTION [None]
  - RENAL FAILURE [None]
